FAERS Safety Report 8017106-0 (Version None)
Quarter: 2012Q1

REPORT INFORMATION
  Report Type: 
  Country: None (occurrence: None)
  Receive Date: 20120102
  Receipt Date: 20111229
  Transmission Date: 20120608
  Serious: Yes (Other)
  Sender: FDA-Public Use
  Company Number: US-ROCHE-1026234

PATIENT
  Age: 64 Year
  Sex: Male
  Weight: 48 kg

DRUGS (2)
  1. TEMSIROLIMUS [Suspect]
     Indication: CARCINOID TUMOUR
     Dosage: 25MG IV ON DAYS 1,8, 15, 22, RECENT DOSE ON 7 FEB 2011
     Route: 042
     Dates: start: 20101210
  2. AVASTIN [Suspect]
     Indication: CARCINOID TUMOUR
     Dosage: 10MG/ KG IV OVER 30-90 MIN ON DAYS 1 AND 15, RECENT DOSE ON 27 DEC 2010
     Route: 042
     Dates: start: 20101210

REACTIONS (1)
  - HAEMORRHOIDS [None]
